FAERS Safety Report 18966584 (Version 2)
Quarter: 2021Q2

REPORT INFORMATION
  Report Type: Report from Study
  Country: DE (occurrence: DE)
  Receive Date: 20210304
  Receipt Date: 20210405
  Transmission Date: 20210717
  Serious: Yes (Death, Hospitalization)
  Sender: FDA-Public Use
  Company Number: DE-ROCHE-2098549

PATIENT
  Age: 67 Year
  Sex: Male
  Weight: 106.1 kg

DRUGS (20)
  1. FLUDARABINE PHOSPHATE. [Suspect]
     Active Substance: FLUDARABINE PHOSPHATE
     Indication: CHRONIC LYMPHOCYTIC LEUKAEMIA
     Dosage: CYCLES 1?6: 25 MG/M2, DAY 1?3, EVERY 28 DAY. ?DATE OF MOST RECENT DOSE OF FLUDARABINE 56 MG 02/MAR/2
     Route: 042
     Dates: start: 20171108, end: 20180418
  2. SOLU?MEDROL [Concomitant]
     Active Substance: METHYLPREDNISOLONE SODIUM SUCCINATE
     Route: 042
     Dates: start: 20180206, end: 20180206
  3. CYCLOPHOSPHAMIDE. [Suspect]
     Active Substance: CYCLOPHOSPHAMIDE
     Indication: CHRONIC LYMPHOCYTIC LEUKAEMIA
     Dosage: CYCLES 1?6: 250 MG/M2, DAY 1?3, EVERY 28 DAY?DATE OF MOST RECENT DOSE OF CYCLOPHOPHAMIDE 555 MG: 02
     Route: 042
     Dates: start: 20171108, end: 20180418
  4. HYDREA [Concomitant]
     Active Substance: HYDROXYUREA
     Route: 058
     Dates: start: 20200206
  5. NIVESTIM [Concomitant]
     Active Substance: FILGRASTIM
  6. VENTOLINE [Concomitant]
     Active Substance: ALBUTEROL
     Dates: start: 20140103
  7. TAZOCIN [Concomitant]
     Active Substance: PIPERACILLIN SODIUM\TAZOBACTAM SODIUM
     Route: 042
     Dates: start: 20180306, end: 20180311
  8. CIFIN [Concomitant]
     Active Substance: CIPROFLOXACIN HYDROCHLORIDE
     Route: 048
     Dates: start: 20180307, end: 20180313
  9. MERONEM [Concomitant]
     Active Substance: MEROPENEM
     Route: 042
     Dates: start: 20180311, end: 20180322
  10. VITAMIN D3 [Concomitant]
     Active Substance: CHOLECALCIFEROL
     Route: 048
     Dates: start: 20200129
  11. SOLU?MEDROL [Concomitant]
     Active Substance: METHYLPREDNISOLONE SODIUM SUCCINATE
     Route: 042
     Dates: start: 20180105, end: 20180105
  12. BERODUAL [Concomitant]
     Active Substance: FENOTEROL HYDROBROMIDE\IPRATROPIUM BROMIDE
     Dosage: 1.25 + 0.5 MG DAILY
     Route: 065
     Dates: start: 20180206, end: 20180206
  13. SPIOLTO [Concomitant]
     Active Substance: OLODATEROL HYDROCHLORIDE\TIOTROPIUM BROMIDE MONOHYDRATE
     Dates: start: 20190523
  14. UNIKALK BASIC [Concomitant]
     Route: 048
     Dates: start: 20171111
  15. RITUXIMAB. [Suspect]
     Active Substance: RITUXIMAB
     Indication: CHRONIC LYMPHOCYTIC LEUKAEMIA
     Dosage: CYCLE 1: 375 MG/M2, DAY0; CYCLES 2?6: 500 MG/M2, DAY1; EVERY 28 DAYS?DATE OF MOST RECENT DOSE OF RIT
     Route: 042
     Dates: start: 20171108, end: 20180416
  16. CIFIN [Concomitant]
     Active Substance: CIPROFLOXACIN HYDROCHLORIDE
     Route: 048
     Dates: start: 20180115, end: 20180119
  17. TAZOCIN [Concomitant]
     Active Substance: PIPERACILLIN SODIUM\TAZOBACTAM SODIUM
     Route: 042
     Dates: start: 20180115, end: 20180119
  18. TAVEGIL [Concomitant]
     Active Substance: CLEMASTINE FUMARATE
     Route: 042
     Dates: start: 20180206, end: 20180206
  19. SULFATRIM [Concomitant]
     Active Substance: SULFAMETHOXAZOLE\TRIMETHOPRIM
     Route: 048
     Dates: start: 20180309
  20. CHAMPIX [Concomitant]
     Active Substance: VARENICLINE TARTRATE
     Route: 048
     Dates: start: 20180505

REACTIONS (3)
  - Respiratory syncytial virus infection [Not Recovered/Not Resolved]
  - Hodgkin^s disease [Fatal]
  - Pyrexia [Not Recovered/Not Resolved]

NARRATIVE: CASE EVENT DATE: 20180312
